FAERS Safety Report 9970908 (Version 1)
Quarter: 2014Q1

REPORT INFORMATION
  Report Type: Report from Study
  Country: US (occurrence: US)
  Receive Date: 20140306
  Receipt Date: 20140306
  Transmission Date: 20141002
  Serious: No
  Sender: FDA-Public Use
  Company Number: US-ABBVIE-13P-163-1147839-00

PATIENT
  Age: 39 Year
  Sex: Male

DRUGS (14)
  1. HUMIRA [Suspect]
     Indication: PSORIATIC ARTHROPATHY
     Dates: start: 20130806
  2. AZATHIOPRINE [Concomitant]
     Indication: PROSTATIC SPECIFIC ANTIGEN
  3. FENOFIBRATE [Concomitant]
     Indication: BLOOD CHOLESTEROL
  4. LISINOPRIL [Concomitant]
     Indication: HYPERTENSION
  5. FOLIC ACID [Concomitant]
     Indication: PRODUCT USED FOR UNKNOWN INDICATION
  6. ATENOLOL [Concomitant]
     Indication: PRODUCT USED FOR UNKNOWN INDICATION
  7. OMEPRAZOLE [Concomitant]
     Indication: GASTROOESOPHAGEAL REFLUX DISEASE
  8. SULFASALAZINE [Concomitant]
     Indication: ANTIINFLAMMATORY THERAPY
  9. ETODOLAC [Concomitant]
     Indication: PAIN
  10. METFORMIN [Concomitant]
     Indication: DIABETES MELLITUS
     Dosage: BEFORE DINNER
  11. FISH OIL [Concomitant]
     Indication: PRODUCT USED FOR UNKNOWN INDICATION
  12. LOVAZA [Concomitant]
     Indication: PROSTATIC SPECIFIC ANTIGEN
  13. PRAVASTATIN [Concomitant]
     Indication: PRODUCT USED FOR UNKNOWN INDICATION
     Dosage: AT HOUR OF SLEEP
  14. B12 [Concomitant]
     Indication: PRODUCT USED FOR UNKNOWN INDICATION

REACTIONS (1)
  - Injection site mass [Recovered/Resolved]
